FAERS Safety Report 5281610-9 (Version None)
Quarter: 2007Q1

REPORT INFORMATION
  Report Type: 
  Country: None (occurrence: None)
  Receive Date: 20070330
  Receipt Date: 20070322
  Transmission Date: 20070707
  Serious: Yes (Disabling)
  Sender: FDA-Public Use
  Company Number: GB-BAYER-200710369BNE

PATIENT
  Sex: Male
  Weight: 76 kg

DRUGS (6)
  1. CIPROFLOXACIN [Suspect]
     Indication: PROSTATITIS
     Dosage: TOTAL DAILY DOSE: 500 MG
     Route: 048
     Dates: start: 20070216, end: 20070219
  2. ARICEPT [Concomitant]
     Indication: DEMENTIA ALZHEIMER'S TYPE
     Route: 048
  3. ASPIRIN [Concomitant]
  4. BENDROFLUMETHIAZIDE [Concomitant]
  5. BISOPROLOL FUMARATE [Concomitant]
  6. FINASTERIDE [Concomitant]

REACTIONS (2)
  - DYSKINESIA [None]
  - TREMOR [None]
